FAERS Safety Report 25374563 (Version 1)
Quarter: 2025Q2

REPORT INFORMATION
  Report Type: Spontaneous
  Country: US (occurrence: US)
  Receive Date: 20250529
  Receipt Date: 20250529
  Transmission Date: 20250717
  Serious: Yes (Life-Threatening, Other)
  Sender: PFIZER
  Company Number: US-PFIZER INC-PV202500064567

PATIENT
  Age: 50 Year
  Sex: Female

DRUGS (1)
  1. TALAZOPARIB [Suspect]
     Active Substance: TALAZOPARIB
     Dates: start: 202104

REACTIONS (5)
  - Anaemia [Unknown]
  - Metastases to liver [Unknown]
  - Metastasis [Unknown]
  - Metastases to bone [Unknown]
  - Metastases to central nervous system [Unknown]

NARRATIVE: CASE EVENT DATE: 20220701
